FAERS Safety Report 19408263 (Version 2)
Quarter: 2021Q2

REPORT INFORMATION
  Report Type: Spontaneous
  Country: CA (occurrence: CA)
  Receive Date: 20210611
  Receipt Date: 20210630
  Transmission Date: 20210717
  Serious: Yes (Other)
  Sender: FDA-Public Use
  Company Number: CA-AMERICAN REGENT INC-2021001530

PATIENT
  Sex: Female

DRUGS (2)
  1. VENOFER [Suspect]
     Active Substance: IRON SUCROSE
     Dosage: 300 MILLIGRAM, SINGLE
     Route: 042
     Dates: start: 20210607, end: 20210607
  2. VENOFER [Suspect]
     Active Substance: IRON SUCROSE
     Indication: PRODUCT USED FOR UNKNOWN INDICATION
     Dosage: UNK
     Route: 042

REACTIONS (7)
  - Pallor [Recovered/Resolved]
  - Syncope [Recovered/Resolved]
  - Malaise [Unknown]
  - Hyperhidrosis [Unknown]
  - Hypotension [Unknown]
  - Disorientation [Unknown]
  - Chest discomfort [Unknown]

NARRATIVE: CASE EVENT DATE: 20210607
